FAERS Safety Report 21152459 (Version 1)
Quarter: 2022Q3

REPORT INFORMATION
  Report Type: Spontaneous
  Country: US (occurrence: US)
  Receive Date: 20220730
  Receipt Date: 20220730
  Transmission Date: 20221027
  Serious: Yes (Other)
  Sender: FDA-Public Use
  Company Number: US-SA-SAC20220721002068

PATIENT
  Age: 53 Year
  Sex: Female

DRUGS (1)
  1. AUBAGIO [Suspect]
     Active Substance: TERIFLUNOMIDE
     Indication: Multiple sclerosis
     Dosage: 4 MG, QD
     Route: 048
     Dates: start: 20191224

REACTIONS (2)
  - Multiple sclerosis relapse [Unknown]
  - Product use issue [Unknown]

NARRATIVE: CASE EVENT DATE: 20191224
